FAERS Safety Report 22161345 (Version 5)
Quarter: 2023Q2

REPORT INFORMATION
  Report Type: Report from Study
  Country: BE (occurrence: BE)
  Receive Date: 20230331
  Receipt Date: 20230629
  Transmission Date: 20230721
  Serious: Yes (Hospitalization)
  Sender: FDA-Public Use
  Company Number: BE-PFIZER INC-PV202300052866

PATIENT
  Age: 75 Year
  Sex: Female
  Weight: 55 kg

DRUGS (6)
  1. BRAFTOVI [Suspect]
     Active Substance: ENCORAFENIB
     Indication: Colon cancer
     Dosage: 300 MG, DAILY
     Route: 048
     Dates: start: 20220727, end: 20230316
  2. ERBITUX [Suspect]
     Active Substance: CETUXIMAB
     Indication: Colon cancer
     Dosage: 834 MG, EVERY 2 WEEKS
     Route: 042
     Dates: start: 20220727, end: 20230316
  3. FLUPENTIXOL DIHYDROCHLORIDE\MELITRACEN HYDROCHLORIDE [Concomitant]
     Active Substance: FLUPENTIXOL DIHYDROCHLORIDE\MELITRACEN HYDROCHLORIDE
     Dosage: [FLUPENTIXOL DIHYDROCHLORIDE 0.5 MG]/[MELITRACEN HYDROCHLORIDE 10 MG], 1X/DAY
     Route: 048
     Dates: end: 20230316
  4. FLUNITRAZEPAM [Concomitant]
     Active Substance: FLUNITRAZEPAM
     Dosage: 1 MG, 1X/DAY
     Dates: end: 20230316
  5. LANREOTIDE [Concomitant]
     Active Substance: LANREOTIDE
     Dosage: 60 MG, EVERY MONTH
     Route: 058
     Dates: end: 20230316
  6. METOCLOPRAMIDE [Concomitant]
     Active Substance: METOCLOPRAMIDE
     Dosage: 10 MG, 3X/DAY
     Route: 048
     Dates: end: 20230316

REACTIONS (1)
  - Atrial fibrillation [Recovered/Resolved]

NARRATIVE: CASE EVENT DATE: 20230316
